FAERS Safety Report 7542647-X (Version None)
Quarter: 2011Q2

REPORT INFORMATION
  Report Type: 
  Country: None (occurrence: None)
  Receive Date: 20110613
  Receipt Date: 20110608
  Transmission Date: 20111010
  Serious: Yes (Other)
  Sender: FDA-Public Use
  Company Number: BE-GENZYME-FABR-1001966

PATIENT
  Sex: Male
  Weight: 51 kg

DRUGS (2)
  1. FABRAZYME [Suspect]
     Indication: FABRY'S DISEASE
     Dosage: 0.7 MG/KG, Q4W
     Route: 042
  2. FABRAZYME [Suspect]
     Dosage: 2 MG/KG, Q4W
     Route: 042

REACTIONS (1)
  - RENAL IMPAIRMENT [None]
